FAERS Safety Report 6114645-4 (Version None)
Quarter: 2009Q1

REPORT INFORMATION
  Report Type: 
  Country: None (occurrence: None)
  Receive Date: 20090313
  Receipt Date: 20090304
  Transmission Date: 20090719
  Serious: Yes (Hospitalization)
  Sender: FDA-Public Use
  Company Number: US-BIOGENIDEC-2008BI027801

PATIENT
  Sex: Female

DRUGS (1)
  1. AVONEX [Suspect]
     Indication: MULTIPLE SCLEROSIS
     Route: 030
     Dates: start: 20020812, end: 20070901

REACTIONS (4)
  - ADVERSE EVENT [None]
  - MEMORY IMPAIRMENT [None]
  - PYREXIA [None]
  - URINARY TRACT INFECTION [None]
